FAERS Safety Report 11115461 (Version 1)
Quarter: 2015Q2

REPORT INFORMATION
  Report Type: Spontaneous
  Country: US (occurrence: None)
  Receive Date: 20150514
  Receipt Date: 20150514
  Transmission Date: 20150821
  Serious: Yes (Hospitalization)
  Sender: FDA-Public Use
  Company Number: None

PATIENT
  Age: 60 Year
  Sex: Female
  Weight: 137.36 kg

DRUGS (1)
  1. METFORMIN HYDROCHLORIDE. [Suspect]
     Active Substance: METFORMIN HYDROCHLORIDE
     Dates: end: 20150504

REACTIONS (6)
  - Urine ketone body present [None]
  - Back pain [None]
  - White blood cell count decreased [None]
  - Sepsis [None]
  - Urinary tract infection [None]
  - Urine bilirubin increased [None]

NARRATIVE: CASE EVENT DATE: 20150502
